FAERS Safety Report 20879155 (Version 1)
Quarter: 2022Q2

REPORT INFORMATION
  Report Type: Spontaneous
  Country: TW (occurrence: TW)
  Receive Date: 20220526
  Receipt Date: 20220526
  Transmission Date: 20220721
  Serious: Yes (Other)
  Sender: FDA-Public Use
  Company Number: TW-DSJP-DSJ-2022-117624

PATIENT
  Age: 85 Year
  Sex: Female
  Weight: 75 kg

DRUGS (1)
  1. EDOXABAN [Suspect]
     Active Substance: EDOXABAN
     Indication: Atrial fibrillation
     Dosage: 30 MG, QD
     Route: 048

REACTIONS (10)
  - Prothrombin time prolonged [Unknown]
  - Acute kidney injury [Unknown]
  - Vomiting [Unknown]
  - Blood bilirubin increased [Unknown]
  - N-terminal prohormone brain natriuretic peptide increased [Unknown]
  - Cholelithiasis [Unknown]
  - Cholecystitis chronic [Unknown]
  - Congestive hepatopathy [Unknown]
  - Melaena [Unknown]
  - Altered state of consciousness [Unknown]

NARRATIVE: CASE EVENT DATE: 20210629
